FAERS Safety Report 11032995 (Version 2)
Quarter: 2015Q4

REPORT INFORMATION
  Report Type: Report from Study
  Country: US (occurrence: US)
  Receive Date: 20150415
  Receipt Date: 20151008
  Transmission Date: 20160304
  Serious: Yes (Other)
  Sender: FDA-Public Use
  Company Number: PHHY2015US029941

PATIENT
  Sex: Female
  Weight: 79.37 kg

DRUGS (11)
  1. SIMVASTATIN. [Concomitant]
     Active Substance: SIMVASTATIN
     Indication: HYPERTENSION
     Dosage: 20 MG, QD
     Route: 065
  2. MULTI VITAMIN [Concomitant]
     Active Substance: VITAMINS
     Indication: PRODUCT USED FOR UNKNOWN INDICATION
     Route: 065
  3. FISH OIL [Concomitant]
     Active Substance: FISH OIL
     Indication: DYSLIPIDAEMIA
     Dosage: 1000 MG, BID
     Route: 065
  4. GILENYA [Suspect]
     Active Substance: FINGOLIMOD HYDROCHLORIDE
     Indication: RELAPSING-REMITTING MULTIPLE SCLEROSIS
     Dosage: 0.5 MG, QD
     Route: 048
     Dates: start: 20150327
  5. IBUPROFEN. [Concomitant]
     Active Substance: IBUPROFEN
     Indication: PRODUCT USED FOR UNKNOWN INDICATION
     Dosage: 200 MG, UNK
     Route: 065
  6. AMPYRA [Concomitant]
     Active Substance: DALFAMPRIDINE
     Dosage: 10 MG, UNK
     Route: 065
  7. HYDROCHLOROTHIAZIDE. [Concomitant]
     Active Substance: HYDROCHLOROTHIAZIDE
     Indication: HYPERTENSION
     Dosage: 25 MG, UNK
     Route: 065
  8. VITAMIN D [Concomitant]
     Active Substance: CHOLECALCIFEROL
     Indication: PRODUCT USED FOR UNKNOWN INDICATION
     Dosage: 2000 IU, UNK
     Route: 065
  9. BENADRYL                           /00647601/ [Concomitant]
     Active Substance: CAMPHOR\DIPHENHYDRAMINE\ZINC OXIDE
     Indication: PRODUCT USED FOR UNKNOWN INDICATION
     Dosage: 12.5 MG, UNK
     Route: 065
  10. HYDROCHLOROTHIAZIDE. [Concomitant]
     Active Substance: HYDROCHLOROTHIAZIDE
     Dosage: 50 MG, QD
     Route: 065
  11. AMPYRA [Concomitant]
     Active Substance: DALFAMPRIDINE
     Indication: GAIT DISTURBANCE
     Dosage: 10 MG, UNK
     Route: 065

REACTIONS (50)
  - Gait disturbance [Unknown]
  - Micturition urgency [Unknown]
  - Clumsiness [Unknown]
  - Blood pressure diastolic increased [Unknown]
  - Cerebellar syndrome [Unknown]
  - Muscle spasms [Unknown]
  - Hoffmann^s sign [Unknown]
  - Abasia [Unknown]
  - Ataxia [Unknown]
  - Pain in extremity [Unknown]
  - Somnolence [Unknown]
  - Back pain [Unknown]
  - Paraesthesia [Unknown]
  - Musculoskeletal stiffness [Unknown]
  - Depression [Recovering/Resolving]
  - Cholelithiasis [Recovered/Resolved]
  - Hemiparesis [Unknown]
  - Upper motor neurone lesion [Unknown]
  - Gait spastic [Unknown]
  - Nervous system disorder [Unknown]
  - Decreased vibratory sense [Unknown]
  - Grip strength decreased [Unknown]
  - Diarrhoea [Unknown]
  - Blood cholesterol increased [Unknown]
  - Crying [Unknown]
  - Monoplegia [Unknown]
  - Memory impairment [Recovering/Resolving]
  - Hypertonia [Unknown]
  - Coordination abnormal [Unknown]
  - Hypokinesia [Unknown]
  - Tremor [Unknown]
  - Peripheral swelling [Unknown]
  - Multiple sclerosis [Unknown]
  - Fatigue [Unknown]
  - Gastrointestinal sounds abnormal [Unknown]
  - Abdominal pain [Unknown]
  - Neurogenic bladder [Unknown]
  - Muscular weakness [Unknown]
  - Muscle spasticity [Unknown]
  - Dysstasia [Unknown]
  - Hypoaesthesia [Unknown]
  - Hyperreflexia [Unknown]
  - Burning sensation [Unknown]
  - Urinary incontinence [Unknown]
  - Choking [Unknown]
  - Ingrowing nail [Unknown]
  - Visual acuity reduced [Unknown]
  - Neurogenic bowel [Unknown]
  - Dysphagia [Unknown]
  - Drug intolerance [Unknown]
